FAERS Safety Report 7326542-7 (Version None)
Quarter: 2011Q1

REPORT INFORMATION
  Report Type: 
  Country: None (occurrence: None)
  Receive Date: 20110302
  Receipt Date: 20110301
  Transmission Date: 20110831
  Serious: Yes (Hospitalization, Other)
  Sender: FDA-Public Use
  Company Number: US-BAYER-2011-018959

PATIENT
  Sex: Female

DRUGS (1)
  1. YAZ [Suspect]
     Route: 048

REACTIONS (1)
  - PULMONARY EMBOLISM [None]
